FAERS Safety Report 9855507 (Version 1)
Quarter: 2014Q1

REPORT INFORMATION
  Report Type: Spontaneous
  Country: JP (occurrence: JP)
  Receive Date: 20140130
  Receipt Date: 20140130
  Transmission Date: 20141002
  Serious: Yes (Other)
  Sender: FDA-Public Use
  Company Number: JP-ASTELLAS-2013JP014304

PATIENT
  Sex: Male

DRUGS (2)
  1. PROGRAF [Suspect]
     Indication: RENAL TRANSPLANT
     Route: 048
  2. CELLCEPT /01275102/ [Suspect]
     Route: 048

REACTIONS (1)
  - Liver disorder [Recovered/Resolved]
